FAERS Safety Report 16580070 (Version 2)
Quarter: 2019Q3

REPORT INFORMATION
  Report Type: Spontaneous
  Country: US (occurrence: US)
  Receive Date: 20190716
  Receipt Date: 20190924
  Transmission Date: 20191004
  Serious: No
  Sender: FDA-Public Use
  Company Number: US-BAUSCH-BL-2019-019106

PATIENT
  Sex: Female

DRUGS (1)
  1. SODIUM SULFACETAMIDE [Suspect]
     Active Substance: SULFACETAMIDE SODIUM
     Indication: PRODUCT USED FOR UNKNOWN INDICATION
     Dosage: 1-2 DROPS EVERY 2-4 HOURS, WHILE AWAKE
     Route: 065
     Dates: start: 20190227

REACTIONS (2)
  - Expired product administered [Unknown]
  - Injury [Unknown]

NARRATIVE: CASE EVENT DATE: 2019
